FAERS Safety Report 17456866 (Version 1)
Quarter: 2020Q1

REPORT INFORMATION
  Report Type: Spontaneous
  Country: SE (occurrence: SE)
  Receive Date: 20200225
  Receipt Date: 20200225
  Transmission Date: 20200409
  Serious: Yes (Hospitalization)
  Sender: FDA-Public Use
  Company Number: NVSC2020SE047042

PATIENT
  Age: 14 Year
  Sex: Female

DRUGS (2)
  1. RITALIN [Suspect]
     Active Substance: METHYLPHENIDATE HYDROCHLORIDE
     Indication: PRODUCT USED FOR UNKNOWN INDICATION
     Dosage: UNK (TROLIGEN 2 RITALIN, OKLAR STYRKA)
     Route: 048
     Dates: start: 20180816, end: 20180816
  2. PROPAVAN [Suspect]
     Active Substance: PROPIOMAZINE
     Indication: PRODUCT USED FOR UNKNOWN INDICATION
     Dosage: UNK (TROLIGEN 3X25 MG)
     Route: 048
     Dates: start: 20180816, end: 20180816

REACTIONS (4)
  - Fatigue [Unknown]
  - Intentional overdose [Unknown]
  - Vomiting [Unknown]
  - Lethargy [Unknown]

NARRATIVE: CASE EVENT DATE: 201808
